FAERS Safety Report 15158791 (Version 1)
Quarter: 2018Q3

REPORT INFORMATION
  Report Type: Spontaneous
  Country: US (occurrence: US)
  Receive Date: 20180718
  Receipt Date: 20180718
  Transmission Date: 20181010
  Serious: Yes (Other)
  Sender: FDA-Public Use
  Company Number: US-NOVOPROD-610683

PATIENT
  Sex: Female

DRUGS (2)
  1. SAXENDA [Suspect]
     Active Substance: LIRAGLUTIDE
     Indication: PRODUCT USED FOR UNKNOWN INDICATION
     Dosage: UNK
     Route: 058
     Dates: start: 2017, end: 20180708
  2. SAXENDA [Suspect]
     Active Substance: LIRAGLUTIDE
     Dosage: DECREASED DOSE
     Route: 058
     Dates: start: 20180709

REACTIONS (1)
  - Enteritis [Unknown]

NARRATIVE: CASE EVENT DATE: 20180709
